FAERS Safety Report 9559381 (Version 1)
Quarter: 2013Q3

REPORT INFORMATION
  Report Type: Spontaneous
  Country: US (occurrence: US)
  Receive Date: 20130927
  Receipt Date: 20130927
  Transmission Date: 20140515
  Serious: Yes (Life-Threatening)
  Sender: FDA-Public Use
  Company Number: US-JNJFOC-20130914979

PATIENT
  Age: 76 Year
  Sex: Male

DRUGS (1)
  1. XARELTO [Suspect]
     Indication: THROMBOSIS
     Route: 048

REACTIONS (2)
  - Suicide attempt [Recovered/Resolved]
  - Respiratory failure [Not Recovered/Not Resolved]
